FAERS Safety Report 23130218 (Version 1)
Quarter: 2023Q4

REPORT INFORMATION
  Report Type: Spontaneous
  Country: GB (occurrence: GB)
  Receive Date: 20231031
  Receipt Date: 20231031
  Transmission Date: 20240110
  Serious: Yes (Other)
  Sender: FDA-Public Use
  Company Number: GB-MHRA-TPP23210222C7593029YC1634895956140

PATIENT
  Age: 51 Year
  Sex: Female
  Weight: 78 kg

DRUGS (5)
  1. NITROFURANTOIN [Suspect]
     Active Substance: NITROFURANTOIN
     Indication: Ill-defined disorder
     Dosage: UNK
     Route: 065
     Dates: start: 20211015
  2. AMLODIPINE [Concomitant]
     Active Substance: AMLODIPINE BESYLATE
     Indication: Ill-defined disorder
     Dosage: UNK (TAKE ONE EVERY MORNING TO REDUCE BLOOD PRESSURE)
     Route: 065
     Dates: start: 20200430
  3. CHLORPHENIRAMINE MALEATE [Concomitant]
     Active Substance: CHLORPHENIRAMINE MALEATE
     Indication: Ill-defined disorder
     Dosage: UNK (TAKE ONE EVERY 4-6 HRS)
     Route: 065
     Dates: start: 20211015
  4. NITROFURANTOIN [Concomitant]
     Active Substance: NITROFURANTOIN
     Indication: Ill-defined disorder
     Dosage: UNK (TAKE ONE TWICE DAILY)
     Route: 065
     Dates: start: 20211013, end: 20211016
  5. TRIMETHOPRIM [Concomitant]
     Active Substance: TRIMETHOPRIM
     Indication: Ill-defined disorder
     Dosage: UNK (TAKE ONE TWICE DAILY FOR 3 DAYS, TO TREAT URINE)
     Route: 065
     Dates: start: 20211015, end: 20211018

REACTIONS (3)
  - Rash pruritic [Recovered/Resolved]
  - Swelling face [Unknown]
  - Dysphagia [Unknown]

NARRATIVE: CASE EVENT DATE: 20211022
